FAERS Safety Report 4775095-6 (Version None)
Quarter: 2005Q3

REPORT INFORMATION
  Report Type: 
  Country: None (occurrence: None)
  Receive Date: 20050921
  Receipt Date: 20050304
  Transmission Date: 20060218
  Serious: Yes (Other)
  Sender: FDA-Public Use
  Company Number: IE-ABBOTT-05P-167-0293206-00

PATIENT
  Sex: Female

DRUGS (6)
  1. KLACID I.V. [Suspect]
     Indication: PNEUMONIA
     Dosage: 250MG
     Route: 042
     Dates: start: 20050303, end: 20050304
  2. PARACETAMOL [Concomitant]
     Indication: DRUG USE FOR UNKNOWN INDICATION
  3. CO-AMOXICILLIN [Concomitant]
     Indication: DRUG USE FOR UNKNOWN INDICATION
  4. HEPARIN-FRACTION, SODIUM SALT [Concomitant]
     Indication: DRUG USE FOR UNKNOWN INDICATION
  5. ALBUTEROL SULFATE HFA [Concomitant]
     Indication: DRUG USE FOR UNKNOWN INDICATION
  6. TROMETHAZINE HCL [Concomitant]
     Indication: DRUG USE FOR UNKNOWN INDICATION

REACTIONS (13)
  - BURNING SENSATION [None]
  - CAESAREAN SECTION [None]
  - CHEST DISCOMFORT [None]
  - CHEST PAIN [None]
  - DRUG ADMINISTRATION ERROR [None]
  - DRUG EXPOSURE DURING PREGNANCY [None]
  - FEELING HOT [None]
  - HYPERTENSION [None]
  - INJECTION SITE INFLAMMATION [None]
  - INJECTION SITE PAIN [None]
  - MEDICATION ERROR [None]
  - PHLEBITIS [None]
  - PREGNANCY [None]
